FAERS Safety Report 6367022-5 (Version None)
Quarter: 2009Q3

REPORT INFORMATION
  Report Type: 
  Country: None (occurrence: None)
  Receive Date: 20090915
  Receipt Date: 20090126
  Transmission Date: 20100115
  Serious: Yes (Death, Hospitalization)
  Sender: FDA-Public Use
  Company Number: AMI0010456

PATIENT
  Age: 22 Month
  Sex: Female

DRUGS (1)
  1. PHYTONADIONE [Suspect]
     Indication: OVERDOSE

REACTIONS (1)
  - ENCEPHALOPATHY [None]
